FAERS Safety Report 5148894-9 (Version None)
Quarter: 2006Q4

REPORT INFORMATION
  Report Type: 
  Country: None (occurrence: None)
  Receive Date: 20061113
  Receipt Date: 20061106
  Transmission Date: 20070319
  Serious: Yes (Hospitalization)
  Sender: FDA-Public Use
  Company Number: US-JNJFOC-20061101545

PATIENT
  Sex: Female
  Weight: 104.33 kg

DRUGS (2)
  1. REMICADE [Suspect]
     Indication: CROHN'S DISEASE
     Dosage: HAS BEEN ON FOR 2-3 YEARS
     Route: 042
  2. 6 MP [Concomitant]
     Indication: CROHN'S DISEASE

REACTIONS (2)
  - ATRIAL FIBRILLATION [None]
  - PULMONARY OEDEMA [None]
